FAERS Safety Report 7593282-9 (Version None)
Quarter: 2011Q3

REPORT INFORMATION
  Report Type: 
  Country: None (occurrence: None)
  Receive Date: 20110706
  Receipt Date: 20110624
  Transmission Date: 20111222
  Serious: Yes (Other)
  Sender: FDA-Public Use
  Company Number: JP-BRISTOL-MYERS SQUIBB COMPANY-15870728

PATIENT
  Age: 2 Year
  Sex: Male
  Weight: 10 kg

DRUGS (6)
  1. PARAPLATIN [Suspect]
  2. VINCRISTINE [Suspect]
  3. CYCLOPHOSPHAMIDE [Suspect]
  4. VEPESID [Suspect]
  5. IFOSFAMIDE [Suspect]
  6. PIRARUBICIN [Suspect]

REACTIONS (2)
  - RICKETS [None]
  - FANCONI SYNDROME [None]
